FAERS Safety Report 8524708 (Version 5)
Quarter: 2013Q4

REPORT INFORMATION
  Report Type: Spontaneous
  Country: US (occurrence: US)
  Receive Date: 20120423
  Receipt Date: 20131022
  Transmission Date: 20140711
  Serious: Yes (Hospitalization)
  Sender: FDA-Public Use
  Company Number: US-BIOGENIDEC-2012BI013152

PATIENT
  Age: 41 Year
  Sex: Female

DRUGS (14)
  1. TYSABRI [Suspect]
     Indication: MULTIPLE SCLEROSIS
     Route: 042
     Dates: start: 20090325, end: 20090624
  2. TYSABRI [Suspect]
     Indication: MULTIPLE SCLEROSIS
     Route: 042
     Dates: start: 20091118, end: 20130305
  3. TYSABRI [Suspect]
     Indication: MULTIPLE SCLEROSIS
     Route: 042
     Dates: start: 20130805
  4. GLIMEPIRIDE [Concomitant]
     Indication: DIABETES MELLITUS
  5. VICTOZA [Concomitant]
     Indication: DIABETES MELLITUS
  6. COREG [Concomitant]
     Indication: CARDIAC FAILURE CONGESTIVE
  7. LISINOPRIL [Concomitant]
     Indication: CARDIAC FAILURE CONGESTIVE
  8. POTASSIUM [Concomitant]
     Indication: CARDIAC FAILURE CONGESTIVE
  9. DIGOXIN [Concomitant]
     Indication: CARDIAC FAILURE CONGESTIVE
  10. SPIRONOLACTONE [Concomitant]
     Indication: CARDIAC FAILURE CONGESTIVE
  11. TORASEMIDE [Concomitant]
     Indication: CARDIAC FAILURE CONGESTIVE
  12. LASIX [Concomitant]
     Indication: CARDIAC FAILURE CONGESTIVE
  13. NITROGLYCERIN SUBLINGUAL [Concomitant]
     Indication: CARDIAC FAILURE CONGESTIVE
  14. RANITIDINE [Concomitant]
     Indication: GASTROOESOPHAGEAL REFLUX DISEASE

REACTIONS (18)
  - Back disorder [Not Recovered/Not Resolved]
  - Weight bearing difficulty [Not Recovered/Not Resolved]
  - Dysstasia [Not Recovered/Not Resolved]
  - Spinal osteoarthritis [Not Recovered/Not Resolved]
  - Procedural pain [Recovered/Resolved]
  - Road traffic accident [Recovered/Resolved]
  - Post-traumatic neck syndrome [Not Recovered/Not Resolved]
  - Dermatitis contact [Not Recovered/Not Resolved]
  - Wound infection staphylococcal [Not Recovered/Not Resolved]
  - General symptom [Not Recovered/Not Resolved]
  - Hypoaesthesia [Not Recovered/Not Resolved]
  - Spinal cord compression [Not Recovered/Not Resolved]
  - Neuralgia [Not Recovered/Not Resolved]
  - Coordination abnormal [Not Recovered/Not Resolved]
  - Insomnia [Not Recovered/Not Resolved]
  - Hyperaesthesia [Not Recovered/Not Resolved]
  - Back pain [Not Recovered/Not Resolved]
  - Mobility decreased [Not Recovered/Not Resolved]
